FAERS Safety Report 5864879-9 (Version None)
Quarter: 2008Q3

REPORT INFORMATION
  Report Type: 
  Country: None (occurrence: None)
  Receive Date: 20080829
  Receipt Date: 20080723
  Transmission Date: 20090109
  Serious: No
  Sender: FDA-Public Use
  Company Number: US-ABBOTT-08P-163-0465279-00

PATIENT
  Sex: Male
  Weight: 88.53 kg

DRUGS (2)
  1. SIMCOR [Suspect]
     Indication: BLOOD CHOLESTEROL INCREASED
     Dosage: 500MG/20MG AT HS
     Route: 048
     Dates: start: 20080709
  2. ANTI-INFLAMMATORY DRUG FOR ARTHRITIS [Concomitant]
     Indication: ARTHRITIS

REACTIONS (1)
  - SOMNOLENCE [None]
